FAERS Safety Report 11054745 (Version 1)
Quarter: 2015Q2

REPORT INFORMATION
  Report Type: Spontaneous
  Country: US (occurrence: None)
  Receive Date: 20150420
  Receipt Date: 20150420
  Transmission Date: 20150821
  Serious: Yes (Other)
  Sender: FDA-Public Use
  Company Number: 2015AKN00207

PATIENT
  Age: 23 Year
  Sex: Male
  Weight: 74.8 kg

DRUGS (1)
  1. MYORISAN [Suspect]
     Active Substance: ISOTRETINOIN
     Indication: ACNE
     Dates: start: 20141020, end: 201411

REACTIONS (3)
  - Dry skin [None]
  - Blood triglycerides abnormal [None]
  - Depression [None]

NARRATIVE: CASE EVENT DATE: 20150213
